FAERS Safety Report 20033525 (Version 6)
Quarter: 2024Q1

REPORT INFORMATION
  Report Type: Spontaneous
  Country: US (occurrence: US)
  Receive Date: 20211104
  Receipt Date: 20240209
  Transmission Date: 20240409
  Serious: No
  Sender: FDA-Public Use
  Company Number: US-PFIZER INC-2021547749

PATIENT
  Age: 63 Year
  Sex: Female
  Weight: 95.25 kg

DRUGS (2)
  1. ESTRING [Suspect]
     Active Substance: ESTRADIOL
     Indication: Postmenopause
     Dosage: 1 ESTRING EVERY 90 DAYS
     Route: 067
  2. SOLIQUA 100/33 [Concomitant]
     Active Substance: INSULIN GLARGINE\LIXISENATIDE
     Indication: Diabetes mellitus
     Dosage: UNK, 1X/DAY

REACTIONS (1)
  - Incorrect product administration duration [Unknown]
